FAERS Safety Report 9676284 (Version 2)
Quarter: 2013Q4

REPORT INFORMATION
  Report Type: Spontaneous
  Country: US (occurrence: US)
  Receive Date: 20131107
  Receipt Date: 20131107
  Transmission Date: 20140711
  Serious: Yes (Other)
  Sender: FDA-Public Use
  Company Number: US-GILEAD-2011-0043551

PATIENT
  Sex: Female

DRUGS (2)
  1. LETAIRIS [Suspect]
     Indication: PRODUCT USED FOR UNKNOWN INDICATION
     Route: 048
     Dates: start: 20080701
  2. BUSPAR [Concomitant]

REACTIONS (4)
  - Bronchopneumonia [Unknown]
  - Diarrhoea [Unknown]
  - Unevaluable event [Unknown]
  - Vomiting [Unknown]
